FAERS Safety Report 17230132 (Version 1)
Quarter: 2019Q4

REPORT INFORMATION
  Report Type: Spontaneous
  Country: US (occurrence: US)
  Receive Date: 20191210
  Receipt Date: 20191210
  Transmission Date: 20200122
  Serious: Yes (Hospitalization)
  Sender: FDA-Public Use
  Company Number: None

PATIENT
  Age: 63 Year
  Sex: Female

DRUGS (12)
  1. RIFAXIMIN (XIFAXAN) [Concomitant]
  2. CALCIUM-VITAMIN D3-VITAMIN K [Concomitant]
  3. LACTULOSE (DUPHALAC) [Concomitant]
  4. LISINOPRIL (PRINIVIL, ZESTRIL0 [Concomitant]
  5. AMBIEN [Concomitant]
     Active Substance: ZOLPIDEM TARTRATE
  6. PROTONIX [Concomitant]
     Active Substance: PANTOPRAZOLE SODIUM
  7. SLOW-MAG [Concomitant]
     Active Substance: MAGNESIUM CHLORIDE
  8. METFORMIN (GLUCOPHAGE) [Concomitant]
  9. NIVOLUMAB [Suspect]
     Active Substance: NIVOLUMAB
     Indication: HEPATOCELLULAR CARCINOMA
     Dates: start: 20180926
  10. XANAX [Concomitant]
     Active Substance: ALPRAZOLAM
  11. ZOFRAN [Concomitant]
     Active Substance: ONDANSETRON HYDROCHLORIDE
  12. PROCHLORPERAZINE MALEATE (COMPAZINE) [Concomitant]

REACTIONS (8)
  - Pyrexia [None]
  - Peripheral swelling [None]
  - Animal bite [None]
  - Wound [None]
  - Pain in extremity [None]
  - Erythema [None]
  - Liver function test increased [None]
  - Chills [None]

NARRATIVE: CASE EVENT DATE: 20181224
